FAERS Safety Report 25567095 (Version 3)
Quarter: 2025Q3

REPORT INFORMATION
  Report Type: Report from Study
  Country: RS (occurrence: RS)
  Receive Date: 20250716
  Receipt Date: 20250811
  Transmission Date: 20251020
  Serious: Yes (Hospitalization)
  Sender: PFIZER
  Company Number: RS-PFIZER INC-PV202500084499

PATIENT
  Age: 64 Year
  Sex: Female
  Weight: 69 kg

DRUGS (20)
  1. VINCRISTINE [Suspect]
     Active Substance: VINCRISTINE
     Indication: Diffuse large B-cell lymphoma
     Dosage: 1.4 MG/M2, ONCE PER CYCLE (EVERY 21 DAYS), D1 PER CYCLE
     Route: 042
     Dates: start: 20220722
  2. DOXORUBICIN HYDROCHLORIDE [Suspect]
     Active Substance: DOXORUBICIN HYDROCHLORIDE
     Indication: Diffuse large B-cell lymphoma
     Dosage: 50 MG/M2, ONCE PER CYCLE (EVERY 21 DAYS), D1 PER CYCLE, INFUSION
     Route: 042
     Dates: start: 20220722
  3. RITUXIMAB [Suspect]
     Active Substance: RITUXIMAB
     Indication: Diffuse large B-cell lymphoma
     Dosage: 375 MG/M2, ONCE PER CYCLE (EVERY 21 DAYS), D1 PER CYCLE, INFUSION
     Route: 042
     Dates: start: 20220722
  4. CYCLOPHOSPHAMIDE [Suspect]
     Active Substance: CYCLOPHOSPHAMIDE
     Indication: Diffuse large B-cell lymphoma
     Dosage: 750 MG/M2, ONCE PER CYCLE (EVERY 21 DAYS), D1 PER CYCLE, INFUSION
     Route: 042
     Dates: start: 20220722
  5. PREDNISOLONE [Suspect]
     Active Substance: PREDNISOLONE
     Indication: Diffuse large B-cell lymphoma
     Route: 048
     Dates: start: 20220722
  6. INVESTIGATIONAL PRODUCT [Suspect]
     Active Substance: INVESTIGATIONAL PRODUCT
     Indication: Diffuse large B-cell lymphoma
     Dosage: TAFASITAMAB/PLACEBO, ONCE WEEKLY
     Route: 042
     Dates: start: 20220721, end: 20220728
  7. INVESTIGATIONAL PRODUCT [Suspect]
     Active Substance: INVESTIGATIONAL PRODUCT
     Route: 048
     Dates: start: 20220721, end: 20220728
  8. INVESTIGATIONAL PRODUCT [Suspect]
     Active Substance: INVESTIGATIONAL PRODUCT
     Dates: start: 20220805
  9. IRBENIDA PLUS [Concomitant]
     Indication: Hypertension
     Route: 048
     Dates: start: 20180101
  10. BISOPROLOL [Concomitant]
     Active Substance: BISOPROLOL
     Indication: Hypertension
     Route: 048
     Dates: start: 20180101
  11. ALLOPURINOL [Concomitant]
     Active Substance: ALLOPURINOL
     Indication: Tumour lysis syndrome
     Route: 048
     Dates: start: 20220719
  12. ALLOPURINOL [Concomitant]
     Active Substance: ALLOPURINOL
     Indication: Prophylaxis
  13. NADROPARIN CALCIUM [Concomitant]
     Active Substance: NADROPARIN CALCIUM
     Indication: Embolism venous
     Dosage: 2X0.6 ML/24H, STOP DATE UNKNOWN
     Route: 058
     Dates: start: 20220721
  14. METRONIDAZOLE [Concomitant]
     Active Substance: METRONIDAZOLE
     Indication: Clostridium difficile infection
     Route: 048
     Dates: start: 20220721, end: 20220729
  15. VANCOMYCIN [Concomitant]
     Active Substance: VANCOMYCIN
     Indication: Clostridium difficile infection
     Route: 048
     Dates: start: 20220721, end: 20220804
  16. FLUCONAZOLE [Concomitant]
     Active Substance: FLUCONAZOLE
     Indication: Fungal test positive
     Route: 048
     Dates: start: 20220723, end: 20220810
  17. SPIRONOLACTONE [Concomitant]
     Active Substance: SPIRONOLACTONE
     Indication: Oedema
     Route: 048
     Dates: start: 20220727, end: 20220822
  18. ACYCLOVIR [Concomitant]
     Active Substance: ACYCLOVIR
  19. SODIUM BICARBONATE [Concomitant]
     Active Substance: SODIUM BICARBONATE
  20. DAKTANOL [Concomitant]

REACTIONS (3)
  - Febrile neutropenia [Recovered/Resolved]
  - Urinary tract infection [Recovered/Resolved]
  - Urinary tract infection [Recovering/Resolving]

NARRATIVE: CASE EVENT DATE: 20220728
